FAERS Safety Report 20608136 (Version 1)
Quarter: 2022Q1

REPORT INFORMATION
  Report Type: Spontaneous
  Country: US (occurrence: None)
  Receive Date: 20220317
  Receipt Date: 20220317
  Transmission Date: 20220424
  Serious: Yes (Disabling)
  Sender: FDA-Public Use
  Company Number: None

PATIENT
  Age: 40 Year
  Sex: Female
  Weight: 67.5 kg

DRUGS (11)
  1. BETADINE [Suspect]
     Active Substance: POVIDONE-IODINE
     Indication: Therapeutic skin care topical
     Dosage: OTHER QUANTITY : 1 SWABBED;?OTHER FREQUENCY : ONCE;?
     Route: 061
     Dates: start: 20220302, end: 20220302
  2. PLAQUENIL [Concomitant]
     Active Substance: HYDROXYCHLOROQUINE SULFATE
  3. NUVIGIL [Concomitant]
     Active Substance: ARMODAFINIL
  4. PANTOPRAZOLE [Concomitant]
     Active Substance: PANTOPRAZOLE
  5. SPIRONOLACTONE [Concomitant]
     Active Substance: SPIRONOLACTONE
  6. FLUOXETINE [Concomitant]
     Active Substance: FLUOXETINE HYDROCHLORIDE
  7. TOPIRAMATE [Concomitant]
     Active Substance: TOPIRAMATE
  8. ALBUTEROL [Concomitant]
     Active Substance: ALBUTEROL
  9. MAGNESIUM [Concomitant]
     Active Substance: MAGNESIUM
  10. L-Theronate [Concomitant]
  11. VITAMIN D3 [Concomitant]
     Active Substance: CHOLECALCIFEROL

REACTIONS (13)
  - Application site pain [None]
  - Catheter site pain [None]
  - Dysuria [None]
  - Dysuria [None]
  - Vulvovaginal erythema [None]
  - Vulvovaginal disorder [None]
  - Vulvovaginal discomfort [None]
  - Genital contusion [None]
  - Genital blister [None]
  - Skin exfoliation [None]
  - Genital haemorrhage [None]
  - Iodine allergy [None]
  - Urethral pain [None]

NARRATIVE: CASE EVENT DATE: 20220302
